FAERS Safety Report 7238161-1 (Version None)
Quarter: 2011Q1

REPORT INFORMATION
  Report Type: 
  Country: None (occurrence: None)
  Receive Date: 20110121
  Receipt Date: 20110110
  Transmission Date: 20110831
  Serious: Yes (Hospitalization)
  Sender: FDA-Public Use
  Company Number: FR-SANOFI-AVENTIS-2011SA003698

PATIENT
  Age: 45 Year
  Sex: Male

DRUGS (2)
  1. MULTAQ [Suspect]
  2. FLECAINE [Suspect]
     Route: 065

REACTIONS (2)
  - DRUG ADMINISTRATION ERROR [None]
  - CARDIAC DISORDER [None]
